FAERS Safety Report 6229400-4 (Version None)
Quarter: 2009Q2

REPORT INFORMATION
  Report Type: 
  Country: None (occurrence: None)
  Receive Date: 20090615
  Receipt Date: 20090603
  Transmission Date: 20091009
  Serious: Yes (Hospitalization, Other)
  Sender: FDA-Public Use
  Company Number: US-AMGEN-QUU350065

PATIENT
  Sex: Male

DRUGS (2)
  1. ENBREL [Suspect]
     Indication: RHEUMATOID ARTHRITIS
     Route: 058
     Dates: start: 20020413
  2. ENBREL [Suspect]
     Indication: SCLERODERMA

REACTIONS (5)
  - AORTIC VALVE DISEASE [None]
  - BACK PAIN [None]
  - BLOOD DISORDER [None]
  - MYOCARDIAL INFARCTION [None]
  - MYOCARDITIS [None]
